FAERS Safety Report 6425007-4 (Version None)
Quarter: 2009Q4

REPORT INFORMATION
  Report Type: 
  Country: None (occurrence: None)
  Receive Date: 20091102
  Receipt Date: 20091102
  Transmission Date: 20100525
  Serious: Yes (Life-Threatening, Hospitalization)
  Sender: FDA-Public Use
  Company Number: None

PATIENT
  Age: 72 Year
  Sex: Male
  Weight: 93.4 kg

DRUGS (1)
  1. DOCETAXEL [Suspect]
     Dosage: 74 MG QWEEK IV
     Route: 042
     Dates: start: 20090805, end: 20090805

REACTIONS (6)
  - BRADYCARDIA [None]
  - CARDIO-RESPIRATORY ARREST [None]
  - HYPOTENSION [None]
  - INFUSION RELATED REACTION [None]
  - NAUSEA [None]
  - WHEEZING [None]
